FAERS Safety Report 17855649 (Version 9)
Quarter: 2024Q1

REPORT INFORMATION
  Report Type: Spontaneous
  Country: CA (occurrence: CA)
  Receive Date: 20200603
  Receipt Date: 20240214
  Transmission Date: 20240409
  Serious: Yes (Other)
  Sender: FDA-Public Use
  Company Number: CA-PFIZER INC-2017425878

PATIENT
  Age: 74 Year
  Sex: Female

DRUGS (11)
  1. XELJANZ [Suspect]
     Active Substance: TOFACITINIB CITRATE
     Indication: Rheumatoid arthritis
     Dosage: 2.5 MG, 1X/DAY (HALF-TABLET)
     Route: 048
  2. XELJANZ [Suspect]
     Active Substance: TOFACITINIB CITRATE
     Dosage: 2.5 MG, 2X/DAY (HALF-TABLET)
     Route: 048
  3. XELJANZ [Suspect]
     Active Substance: TOFACITINIB CITRATE
     Dosage: 7.5 MG, 1X/DAY
     Route: 048
  4. XELJANZ [Suspect]
     Active Substance: TOFACITINIB CITRATE
     Dosage: 5 MG, 2X/DAY
     Route: 048
     Dates: start: 20171002, end: 201802
  5. XELJANZ [Suspect]
     Active Substance: TOFACITINIB CITRATE
     Dosage: 5 MG, 2X/DAY
     Route: 048
     Dates: start: 201802, end: 201804
  6. XELJANZ [Suspect]
     Active Substance: TOFACITINIB CITRATE
     Dosage: 5 MG, 2X/DAY
     Route: 048
     Dates: start: 20180504, end: 20180712
  7. XELJANZ [Suspect]
     Active Substance: TOFACITINIB CITRATE
     Dosage: 5 MG, 2X/DAY
     Route: 048
     Dates: start: 2018, end: 201911
  8. XELJANZ [Suspect]
     Active Substance: TOFACITINIB CITRATE
     Dosage: 5 MG, 2X/DAY
     Route: 048
     Dates: start: 202101
  9. FOLIC ACID [Concomitant]
     Active Substance: FOLIC ACID
     Dosage: UNK
  10. METHOTREXATE [Concomitant]
     Active Substance: METHOTREXATE
     Indication: Rheumatoid arthritis
     Dosage: 10 MG, WEEKLY
  11. PLAQUENIL [Concomitant]
     Active Substance: HYDROXYCHLOROQUINE SULFATE
     Indication: Rheumatoid arthritis
     Dosage: 400 MG, DAILY
     Route: 048

REACTIONS (35)
  - Pneumonia [Recovered/Resolved]
  - Neoplasm malignant [Unknown]
  - Breast cancer female [Unknown]
  - Limb deformity [Unknown]
  - Toothache [Unknown]
  - Chronic kidney disease [Not Recovered/Not Resolved]
  - Ligament sprain [Recovering/Resolving]
  - Malaise [Not Recovered/Not Resolved]
  - Cough [Not Recovered/Not Resolved]
  - Pyrexia [Not Recovered/Not Resolved]
  - Influenza [Recovered/Resolved]
  - Rash [Unknown]
  - Blood pressure increased [Not Recovered/Not Resolved]
  - Nasopharyngitis [Not Recovered/Not Resolved]
  - Oropharyngeal pain [Recovering/Resolving]
  - Throat irritation [Not Recovered/Not Resolved]
  - Pruritus [Unknown]
  - Alopecia [Unknown]
  - Depressed mood [Unknown]
  - Dyspepsia [Unknown]
  - Condition aggravated [Unknown]
  - Peripheral swelling [Unknown]
  - Gait disturbance [Unknown]
  - Herpes zoster [Unknown]
  - Facial pain [Not Recovered/Not Resolved]
  - Fatigue [Unknown]
  - Asthenia [Unknown]
  - Dysania [Unknown]
  - Arthritis [Unknown]
  - Osteoarthritis [Unknown]
  - Obesity [Unknown]
  - Drug ineffective [Unknown]
  - Off label use [Unknown]
  - Abdominal pain upper [Recovering/Resolving]
  - Abdominal discomfort [Recovering/Resolving]

NARRATIVE: CASE EVENT DATE: 20170101
